FAERS Safety Report 10548071 (Version 1)
Quarter: 2014Q4

REPORT INFORMATION
  Report Type: Spontaneous
  Country: PT (occurrence: None)
  Receive Date: 20141024
  Receipt Date: 20141024
  Transmission Date: 20150529
  Serious: Yes (Life-Threatening)
  Sender: FDA-Public Use
  Company Number: FK201404396

PATIENT
  Age: 66 Year
  Sex: Female

DRUGS (2)
  1. CEFAZOLIN (MANUFACTURER UNKNOWN) (CEFAZOLIN) (CEFAZOLIN) [Suspect]
     Active Substance: CEFAZOLIN
     Indication: ANTIBIOTIC PROPHYLAXIS
  2. BUPIVACAINE [Concomitant]
     Active Substance: BUPIVACAINE

REACTIONS (2)
  - Drug hypersensitivity [None]
  - Anaphylactic shock [None]
